FAERS Safety Report 10380628 (Version 1)
Quarter: 2014Q1

REPORT INFORMATION
  Report Type: Spontaneous
  Country: US (occurrence: None)
  Receive Date: 20140306
  Receipt Date: 20140306
  Transmission Date: 20141002
  Serious: Yes (Other)
  Sender: FDA-Public Use
  Company Number: 163-21880-13062157

PATIENT
  Age: 82 Year
  Sex: Male
  Weight: 47.17 kg

DRUGS (10)
  1. REVLIMID (LENALIDOMIDE) (25 MILLIGRAM, CAPSULES) [Suspect]
     Indication: PLASMA CELL MYELOMA
     Route: 048
     Dates: start: 201302
  2. DEXAMETHASONE [Concomitant]
  3. EPOETIN ALFA [Concomitant]
  4. ZOCOR (SIMVASTASTIN) [Concomitant]
  5. AVAPRO (IRBESARTAN) [Concomitant]
  6. AVODART (DUTASTERIDE) CAPSULES [Concomitant]
  7. FLOMAX (TAMSULOSIN) [Concomitant]
  8. CLARITIN (LORATADINE) [Concomitant]
  9. PLAVIX (CLOPIDOGREL SULFATE) [Concomitant]
  10. HYDROCODONE WITH TYLENOL (VICODIN) [Concomitant]

REACTIONS (6)
  - Neuropathy peripheral [None]
  - Rhinorrhoea [None]
  - Asthenia [None]
  - Leukopenia [None]
  - Anaemia [None]
  - Dysphonia [None]
